FAERS Safety Report 9243940 (Version 1)
Quarter: 2013Q1

REPORT INFORMATION
  Report Type: Spontaneous
  Country: US (occurrence: None)
  Receive Date: 20121123
  Receipt Date: 20121123
  Transmission Date: 20140127
  Serious: No
  Sender: FDA-Public Use
  Company Number: 362797

PATIENT
  Age: 55 Year
  Sex: Female

DRUGS (13)
  1. VICTOZA (LIRAGLUTIDE) SOLUTION FOR INJECTION, 6MG/ML [Suspect]
     Indication: TYPE 2 DIABETES MELLITUS
     Route: 058
     Dates: start: 20121010
  2. ABILIFY (ARIPIPRAZOLE) [Concomitant]
  3. ASPIRIN (ACETYLSALICYLIC ACID) [Concomitant]
  4. CRESTOR (ROSUVASTATIN CALCIUM) [Concomitant]
  5. CYMBALTA (DULOXETINE HYDROCHLORIDE) [Concomitant]
  6. GLIMEPIRIDE (GLIMEPIRIDE) [Concomitant]
  7. LOPRESSOR (METOPROLOL TARTRATE) [Concomitant]
  8. LAMICTAL (LAMOTRIGINE) [Concomitant]
  9. LORTAB (HYDROCODONE BITARTRATE, PARACETAMOL) [Concomitant]
  10. MOBIC (MELOXICAM) [Concomitant]
  11. NEXIUM (ESOMEPRAZOLE MAGNESIUM) [Concomitant]
  12. TOPIMAX (PREDNICARBATE) [Concomitant]
  13. ZOLOFT (SERTRALINE HYDROCHLORIDE) [Concomitant]

REACTIONS (2)
  - Fatigue [None]
  - Headache [None]
